FAERS Safety Report 14735945 (Version 2)
Quarter: 2018Q2

REPORT INFORMATION
  Report Type: Spontaneous
  Country: GB (occurrence: GB)
  Receive Date: 20180409
  Receipt Date: 20180413
  Transmission Date: 20180711
  Serious: Yes (Other)
  Sender: FDA-Public Use
  Company Number: GB-SA-2018SA096008

PATIENT
  Sex: Female

DRUGS (2)
  1. ENOXAPARIN SODIUM. [Suspect]
     Active Substance: ENOXAPARIN SODIUM
     Indication: HYPERCOAGULATION
     Dosage: 10,000 ONCE DAILY
     Route: 065
  2. INNOHEP [Suspect]
     Active Substance: TINZAPARIN SODIUM
     Indication: HYPERCOAGULATION
     Dosage: 10,000 ONCE DAILY
     Route: 065

REACTIONS (3)
  - Haemorrhage in pregnancy [Recovered/Resolved]
  - Exposure during pregnancy [Unknown]
  - Foetal growth restriction [Unknown]
